FAERS Safety Report 21006984 (Version 1)
Quarter: 2022Q2

REPORT INFORMATION
  Report Type: Spontaneous
  Country: CA (occurrence: CA)
  Receive Date: 20220625
  Receipt Date: 20220625
  Transmission Date: 20220721
  Serious: Yes (Life-Threatening, Hospitalization, Other)
  Sender: FDA-Public Use
  Company Number: None

PATIENT
  Age: 16 Year
  Sex: Male
  Weight: 76 kg

DRUGS (65)
  1. BUSULFAN [Suspect]
     Active Substance: BUSULFAN
     Indication: Prophylaxis against transplant rejection
     Dosage: 1 EVERY 1 DAYS
     Route: 042
  2. FLUDARABINE [Suspect]
     Active Substance: FLUDARABINE PHOSPHATE
     Indication: Prophylaxis against transplant rejection
     Dosage: 1 EVERY 1 DAYS
     Route: 042
  3. METHOTREXATE [Suspect]
     Active Substance: METHOTREXATE
     Indication: Prophylaxis against graft versus host disease
     Route: 042
  4. CYCLOPHOSPHAMIDE [Suspect]
     Active Substance: CYCLOPHOSPHAMIDE
     Indication: Prophylaxis against transplant rejection
     Dosage: 1 EVERY 1 DAYS
     Route: 042
  5. GANCICLOVIR [Suspect]
     Active Substance: GANCICLOVIR
     Indication: Cytomegalovirus infection
     Dosage: 1 EVERY 12 HOURS
     Route: 042
  6. VALGANCICLOVIR [Concomitant]
     Active Substance: VALGANCICLOVIR
  7. ZOPICLONE [Concomitant]
     Active Substance: ZOPICLONE
  8. AMLODIPINE [Concomitant]
     Active Substance: AMLODIPINE BESYLATE
  9. THYMOCYTE IMMUNE GLOBULIN NOS [Concomitant]
     Active Substance: THYMOCYTE IMMUNE GLOBULIN NOS
  10. ATROPINE [Concomitant]
     Active Substance: ATROPINE
  11. CALCIUM\VITAMIN D [Concomitant]
     Active Substance: CALCIUM\VITAMIN D
  12. CETIRIZINE [Concomitant]
     Active Substance: CETIRIZINE HYDROCHLORIDE
  13. CICLESONIDE [Concomitant]
     Active Substance: CICLESONIDE
  14. CIPROFLOXACIN [Concomitant]
     Active Substance: CIPROFLOXACIN
  15. CLONIDINE [Concomitant]
     Active Substance: CLONIDINE
  16. ISAVUCONAZOLE [Concomitant]
     Active Substance: ISAVUCONAZOLE
  17. CYCLOBENZAPRINE [Concomitant]
     Active Substance: CYCLOBENZAPRINE
  18. CYCLOSPORINE [Concomitant]
     Active Substance: CYCLOSPORINE
  19. DEXAMETHASONE [Concomitant]
     Active Substance: DEXAMETHASONE
  20. DEXMEDETOMIDINE [Concomitant]
     Active Substance: DEXMEDETOMIDINE
  21. DICYCLOMINE HYDROCHLORIDE [Concomitant]
     Active Substance: DICYCLOMINE HYDROCHLORIDE
  22. DIMENHYDRINATE [Concomitant]
     Active Substance: DIMENHYDRINATE
     Dosage: LIQUID
  23. DIPHENHYDRAMINE [Concomitant]
     Active Substance: DIPHENHYDRAMINE
  24. DOCUSATE SODIUM [Concomitant]
     Active Substance: DOCUSATE SODIUM
  25. ESCITALOPRAM [Concomitant]
     Active Substance: ESCITALOPRAM OXALATE
  26. FAMOTIDINE [Concomitant]
     Active Substance: FAMOTIDINE
  27. FLUCONAZOLE [Concomitant]
     Active Substance: FLUCONAZOLE
  28. FOSCARNET SODIUM [Concomitant]
     Active Substance: FOSCARNET SODIUM
     Route: 042
  29. FUROSEMIDE [Concomitant]
     Active Substance: FUROSEMIDE
  30. HYDROCORTISONE [Concomitant]
     Active Substance: HYDROCORTISONE
  31. LANSOPRAZOLE [Concomitant]
     Active Substance: LANSOPRAZOLE
  32. LEVETIRACETAM [Concomitant]
     Active Substance: LEVETIRACETAM
  33. LORAZEPAM [Concomitant]
     Active Substance: LORAZEPAM
  34. MAGNESIUM [Concomitant]
     Active Substance: MAGNESIUM
  35. MELATONIN [Concomitant]
     Active Substance: MELATONIN
  36. MESNA [Concomitant]
     Active Substance: MESNA
  37. METHOCARBAMOL [Concomitant]
     Active Substance: METHOCARBAMOL
  38. METHYLPREDNISOLONE [Concomitant]
     Active Substance: METHYLPREDNISOLONE
  39. METOCLOPRAMIDE [Concomitant]
     Active Substance: METOCLOPRAMIDE
  40. METOLAZONE [Concomitant]
     Active Substance: METOLAZONE
  41. MIDAZOLAM [Concomitant]
     Active Substance: MIDAZOLAM
  42. MYCAMINE [Concomitant]
     Active Substance: MICAFUNGIN SODIUM
  43. MYCOPHENOLATE MOFETIL [Concomitant]
     Active Substance: MYCOPHENOLATE MOFETIL
  44. NIFEDIPINE [Concomitant]
     Active Substance: NIFEDIPINE
  45. OLANZAPINE [Concomitant]
     Active Substance: OLANZAPINE
  46. ONDANSETRON [Concomitant]
     Active Substance: ONDANSETRON
  47. OXYBUTYNIN [Concomitant]
     Active Substance: OXYBUTYNIN
  48. PANTOPRAZOLE [Concomitant]
     Active Substance: PANTOPRAZOLE
     Route: 042
  49. PENTAM [Concomitant]
     Active Substance: PENTAMIDINE ISETHIONATE
  50. POLYETHYLENE GLYCOL [Concomitant]
     Active Substance: POLYETHYLENE GLYCOL
  51. POSACONAZOLE [Concomitant]
     Active Substance: POSACONAZOLE
  52. POTASSIUM [Concomitant]
     Active Substance: POTASSIUM
  53. PREDNISONE [Concomitant]
     Active Substance: PREDNISONE
  54. PREGABALIN [Concomitant]
     Active Substance: PREGABALIN
  55. LETERMOVIR [Concomitant]
     Active Substance: LETERMOVIR
  56. PROTAMINE SULFATE [Concomitant]
     Active Substance: PROTAMINE SULFATE
  57. QUETIAPINE [Concomitant]
     Active Substance: QUETIAPINE
  58. SENNOSIDES [Concomitant]
     Active Substance: SENNOSIDES
  59. SODIUM PHOSPHATE [Concomitant]
     Active Substance: SODIUM PHOSPHATE
  60. SPIRONOLACTONE [Concomitant]
     Active Substance: SPIRONOLACTONE
  61. TACROLIMUS [Concomitant]
     Active Substance: TACROLIMUS
  62. TOBRAMYCIN [Concomitant]
     Active Substance: TOBRAMYCIN
  63. TRANEXAMIC ACID [Concomitant]
     Active Substance: TRANEXAMIC ACID
  64. URSODIOL [Concomitant]
     Active Substance: URSODIOL
  65. VALACYCLOVIR HYDROCHLORIDE [Concomitant]
     Active Substance: VALACYCLOVIR HYDROCHLORIDE

REACTIONS (3)
  - Aplastic anaemia [Recovered/Resolved]
  - Febrile neutropenia [Recovered/Resolved]
  - Mucosal inflammation [Recovered/Resolved]
